FAERS Safety Report 25431445 (Version 1)
Quarter: 2025Q2

REPORT INFORMATION
  Report Type: Spontaneous
  Country: EC (occurrence: EC)
  Receive Date: 20250613
  Receipt Date: 20250613
  Transmission Date: 20250717
  Serious: Yes (Other)
  Sender: ACCORD
  Company Number: EC-Accord-489646

PATIENT
  Age: 23 Year
  Sex: Male

DRUGS (4)
  1. ETOPOSIDE [Suspect]
     Active Substance: ETOPOSIDE
     Indication: Testis cancer
     Dates: start: 20241206
  2. BLEOMYCIN [Suspect]
     Active Substance: BLEOMYCIN SULFATE
     Indication: Testis cancer
     Dates: start: 20241206
  3. ASPIRIN [Concomitant]
     Active Substance: ASPIRIN
     Indication: Testis cancer
     Dates: start: 202409
  4. CISPLATIN [Concomitant]
     Active Substance: CISPLATIN
     Indication: Testis cancer
     Dates: start: 20241206, end: 2025

REACTIONS (1)
  - Hepatic enzyme increased [Unknown]

NARRATIVE: CASE EVENT DATE: 20241201
